FAERS Safety Report 8646581 (Version 5)
Quarter: 2013Q2

REPORT INFORMATION
  Report Type: Spontaneous
  Country: US (occurrence: US)
  Receive Date: 20120702
  Receipt Date: 20130423
  Transmission Date: 20140414
  Serious: Yes (Hospitalization, Disabling, Other)
  Sender: FDA-Public Use
  Company Number: US-009507513-1206USA04851

PATIENT
  Sex: Female

DRUGS (12)
  1. FOSAMAX [Suspect]
     Dosage: 70 MG, UNK
     Route: 048
     Dates: start: 20030624, end: 20050225
  2. FOSAMAX [Suspect]
     Dosage: UNK
     Route: 048
     Dates: start: 2001
  3. ACTONEL [Suspect]
     Indication: OSTEOPOROSIS
     Dosage: 35 MG, UNK
     Route: 048
     Dates: start: 20060323, end: 20110421
  4. CALCIUM (UNSPECIFIED) [Concomitant]
     Indication: PROPHYLAXIS
     Dosage: 1000 MG, UNK
     Dates: start: 1992
  5. VITAMIN E [Concomitant]
     Indication: PROPHYLAXIS
     Dosage: UNK
     Dates: start: 1992
  6. FLAXSEED [Concomitant]
     Indication: PROPHYLAXIS
     Dosage: 1000 MG, QD
     Dates: start: 1992
  7. OMEGA-3 [Concomitant]
     Indication: PROPHYLAXIS
     Dosage: 1200 MG, UNK
     Dates: start: 1992
  8. VITAMIN B COMPLEX [Concomitant]
     Indication: PROPHYLAXIS
     Dosage: 1000 MG, UNK
     Dates: start: 1992
  9. ASCORBIC ACID [Concomitant]
     Indication: PROPHYLAXIS
     Dosage: 1000 MG, UNK
     Dates: start: 1992
  10. VITAMIN D (UNSPECIFIED) [Concomitant]
     Indication: PROPHYLAXIS
     Dosage: 1000 MG, UNK
     Dates: start: 1992
  11. ZETIA [Concomitant]
     Indication: HYPERCHOLESTEROLAEMIA
     Route: 048
  12. LIPITOR [Concomitant]
     Indication: HYPERCHOLESTEROLAEMIA

REACTIONS (19)
  - Femur fracture [Recovering/Resolving]
  - Low turnover osteopathy [Unknown]
  - Osteoporosis [Unknown]
  - Stress fracture [Unknown]
  - Femur fracture [Unknown]
  - Pubis fracture [Unknown]
  - Fall [Unknown]
  - Open reduction of fracture [Unknown]
  - Tibia fracture [Unknown]
  - Anaemia postoperative [Unknown]
  - Lower limb fracture [Unknown]
  - Tooth fracture [Unknown]
  - Tooth extraction [Unknown]
  - Tooth abscess [Recovered/Resolved]
  - Essential hypertension [Unknown]
  - Fall [Unknown]
  - Atrophic vulvovaginitis [Unknown]
  - Impaired healing [Recovered/Resolved]
  - Adverse event [Unknown]
